FAERS Safety Report 16461219 (Version 4)
Quarter: 2019Q3

REPORT INFORMATION
  Report Type: Report from Study
  Country: CA (occurrence: CA)
  Receive Date: 20190620
  Receipt Date: 20190812
  Transmission Date: 20191004
  Serious: Yes (Hospitalization, Disabling)
  Sender: FDA-Public Use
  Company Number: CA-ACTELION-A-NJ2019-188119

PATIENT
  Age: 73 Year
  Sex: Female

DRUGS (21)
  1. UPTRAVI [Suspect]
     Active Substance: SELEXIPAG
     Dosage: 800 MCG QAM, 1000 MCG QPM
     Route: 048
     Dates: start: 20190611
  2. VENTOLIN [Concomitant]
     Active Substance: ALBUTEROL SULFATE
  3. SOFLAX [Concomitant]
     Active Substance: DOCUSATE
  4. UPTRAVI [Suspect]
     Active Substance: SELEXIPAG
     Dosage: 800 MCG, BID
     Route: 048
     Dates: start: 20190408, end: 20190611
  5. UPTRAVI [Suspect]
     Active Substance: SELEXIPAG
     Dosage: 400 MCG, BID
     Route: 048
  6. RAMIPRIL. [Concomitant]
     Active Substance: RAMIPRIL
  7. ROSUVASTATIN. [Concomitant]
     Active Substance: ROSUVASTATIN
  8. SOLIFENACIN [Concomitant]
     Active Substance: SOLIFENACIN
  9. OXYGEN. [Concomitant]
     Active Substance: OXYGEN
     Dosage: 3 L/MIN
  10. TYLENOL [Concomitant]
     Active Substance: ACETAMINOPHEN
  11. ADCIRCA [Concomitant]
     Active Substance: TADALAFIL
  12. INSPIRAL [Concomitant]
     Active Substance: METHYLPHENIDATE HYDROCHLORIDE
  13. UPTRAVI [Suspect]
     Active Substance: SELEXIPAG
     Indication: PULMONARY ARTERIAL HYPERTENSION
     Dosage: 1400 MCG, BID
     Route: 048
  14. UPTRAVI [Suspect]
     Active Substance: SELEXIPAG
     Dosage: 600 MCG, BID
     Route: 048
  15. UPTRAVI [Suspect]
     Active Substance: SELEXIPAG
     Dosage: 1200 MCG
     Route: 048
  16. GABAPENTIN. [Concomitant]
     Active Substance: GABAPENTIN
  17. FUROSEMIDE. [Concomitant]
     Active Substance: FUROSEMIDE
  18. TRACLEER [Suspect]
     Active Substance: BOSENTAN
     Indication: PULMONARY ARTERIAL HYPERTENSION
     Dosage: 125 MG
     Route: 048
     Dates: start: 20181108
  19. UPTRAVI [Suspect]
     Active Substance: SELEXIPAG
     Dosage: 1200 MCG, BID
     Route: 048
  20. UPTRAVI [Suspect]
     Active Substance: SELEXIPAG
     Dosage: 200 MCG
     Route: 048
     Dates: start: 20190408
  21. VESICARE [Concomitant]
     Active Substance: SOLIFENACIN SUCCINATE

REACTIONS (21)
  - Discomfort [Not Recovered/Not Resolved]
  - Pruritus [Not Recovered/Not Resolved]
  - Walking distance test abnormal [Unknown]
  - Presyncope [Not Recovered/Not Resolved]
  - Back pain [Not Recovered/Not Resolved]
  - Echocardiogram [Unknown]
  - Dyspnoea [Not Recovered/Not Resolved]
  - Syncope [Unknown]
  - Oxygen consumption increased [Not Recovered/Not Resolved]
  - Dizziness [Unknown]
  - Headache [Not Recovered/Not Resolved]
  - Musculoskeletal pain [Not Recovered/Not Resolved]
  - Loss of personal independence in daily activities [Not Recovered/Not Resolved]
  - Unevaluable event [Not Recovered/Not Resolved]
  - Chest discomfort [Not Recovered/Not Resolved]
  - Chest pain [Not Recovered/Not Resolved]
  - Pain in extremity [Unknown]
  - Fall [Unknown]
  - Pain [Not Recovered/Not Resolved]
  - Hypotension [Not Recovered/Not Resolved]
  - Asthenia [Not Recovered/Not Resolved]

NARRATIVE: CASE EVENT DATE: 201904
